FAERS Safety Report 24028883 (Version 1)
Quarter: 2024Q2

REPORT INFORMATION
  Report Type: Spontaneous
  Country: US (occurrence: None)
  Receive Date: 20240627
  Receipt Date: 20240627
  Transmission Date: 20240715
  Serious: Yes (Other)
  Sender: FDA-Public Use
  Company Number: None

PATIENT
  Age: 33 Year
  Sex: Female
  Weight: 69.3 kg

DRUGS (8)
  1. LAGEVRIO [Suspect]
     Active Substance: MOLNUPIRAVIR
     Indication: COVID-19
     Dosage: 4 CAPSULES TWICE A DAY ORAL ?
     Route: 048
     Dates: start: 20240621, end: 20240625
  2. LAMICTAL [Concomitant]
  3. SEROQUEL [Concomitant]
     Active Substance: QUETIAPINE FUMARATE
  4. TRAZODONE [Concomitant]
     Active Substance: TRAZODONE HYDROCHLORIDE
  5. PROZAC [Concomitant]
     Active Substance: FLUOXETINE HYDROCHLORIDE
  6. KEPPRA [Concomitant]
     Active Substance: LEVETIRACETAM
  7. VITAMINS [Concomitant]
     Active Substance: VITAMINS
  8. IBUPROFEN [Concomitant]
     Active Substance: IBUPROFEN

REACTIONS (2)
  - Generalised tonic-clonic seizure [None]
  - Partial seizures [None]

NARRATIVE: CASE EVENT DATE: 20240626
